FAERS Safety Report 23870309 (Version 13)
Quarter: 2024Q4

REPORT INFORMATION
  Report Type: Report from Study
  Country: CO (occurrence: CO)
  Receive Date: 20240517
  Receipt Date: 20241226
  Transmission Date: 20250115
  Serious: Yes (Other)
  Sender: NOVARTIS
  Company Number: CO-002147023-NVSC2023CO177434

PATIENT
  Age: 76 Year
  Sex: Female
  Weight: 73 kg

DRUGS (6)
  1. KISQALI [Suspect]
     Active Substance: RIBOCICLIB
     Indication: Hormone receptor positive HER2 negative breast cancer
     Dosage: 400 MG, QD (F 2 TABLETS DAILY FOR 21 DAYS AND A REST OF 7 DAYS)
     Route: 048
     Dates: start: 20230814, end: 20240304
  2. KISQALI [Suspect]
     Active Substance: RIBOCICLIB
     Indication: Breast cancer metastatic
     Dosage: 400 MG, QD (BY MOUTH)
     Route: 048
  3. KISQALI [Suspect]
     Active Substance: RIBOCICLIB
     Dosage: 600 MG, QD
     Route: 048
  4. KISQALI [Suspect]
     Active Substance: RIBOCICLIB
     Dosage: 400 MG, QD
     Route: 048
     Dates: start: 202404
  5. KISQALI [Suspect]
     Active Substance: RIBOCICLIB
     Dosage: 400 MG, QD (2 OF 200 MG)
     Route: 048
  6. LETROZOLE [Suspect]
     Active Substance: LETROZOLE
     Indication: Product used for unknown indication
     Dosage: UNK
     Route: 065
     Dates: end: 20240304

REACTIONS (42)
  - Neuropathy peripheral [Unknown]
  - Spinal fracture [Unknown]
  - Pain [Not Recovered/Not Resolved]
  - Malaise [Unknown]
  - Abdominal discomfort [Unknown]
  - Oedema peripheral [Not Recovered/Not Resolved]
  - Contusion [Not Recovered/Not Resolved]
  - Nausea [Unknown]
  - Thrombosis [Recovered/Resolved]
  - Dizziness [Recovering/Resolving]
  - Peripheral swelling [Not Recovered/Not Resolved]
  - Oropharyngeal pain [Unknown]
  - Increased upper airway secretion [Unknown]
  - Abdominal pain upper [Unknown]
  - Burning sensation [Unknown]
  - Anxiety [Unknown]
  - Productive cough [Unknown]
  - Dyspepsia [Unknown]
  - Alopecia [Not Recovered/Not Resolved]
  - Product physical issue [Unknown]
  - Product solubility abnormal [Unknown]
  - Urticaria [Unknown]
  - Hypersensitivity [Unknown]
  - Flatulence [Unknown]
  - Pain in extremity [Not Recovered/Not Resolved]
  - Constipation [Unknown]
  - Fall [Unknown]
  - Gait disturbance [Unknown]
  - Skin discolouration [Recovering/Resolving]
  - Haematoma [Unknown]
  - Capillary fragility [Unknown]
  - Drug intolerance [Unknown]
  - Nervousness [Unknown]
  - Limb discomfort [Unknown]
  - Anaemia [Not Recovered/Not Resolved]
  - Dysuria [Not Recovered/Not Resolved]
  - Lower limb fracture [Unknown]
  - Body height decreased [Unknown]
  - Musculoskeletal discomfort [Unknown]
  - Diarrhoea [Unknown]
  - Vomiting [Unknown]
  - Discomfort [Unknown]

NARRATIVE: CASE EVENT DATE: 20230801
